FAERS Safety Report 9170629 (Version 1)
Quarter: 2013Q1

REPORT INFORMATION
  Report Type: Spontaneous
  Country: US (occurrence: US)
  Receive Date: 20130319
  Receipt Date: 20130319
  Transmission Date: 20140127
  Serious: Yes (Life-Threatening, Hospitalization, Other)
  Sender: FDA-Public Use
  Company Number: US-JNJFOC-20040807742

PATIENT
  Age: 55 Year
  Sex: Male
  Weight: 99.79 kg

DRUGS (4)
  1. MOTRIN [Suspect]
     Indication: PAIN IN JAW
     Dosage: 10-12 PER DAY, 4-5 DAYS
     Dates: start: 200402
  2. PEG INTRON [Suspect]
     Indication: HEPATITIS C
     Route: 058
  3. REBETOL [Suspect]
     Indication: HEPATITIS C
     Route: 048
  4. ERYTHROPOIETIN [Concomitant]
     Route: 065

REACTIONS (4)
  - Overdose [Unknown]
  - Haematemesis [Unknown]
  - Gastrointestinal haemorrhage [Unknown]
  - Myocardial infarction [Unknown]
